FAERS Safety Report 15360867 (Version 1)
Quarter: 2018Q3

REPORT INFORMATION
  Report Type: Report from Study
  Country: US (occurrence: US)
  Receive Date: 20180907
  Receipt Date: 20180907
  Transmission Date: 20181010
  Serious: Yes (Death, Other)
  Sender: FDA-Public Use
  Company Number: US-BAYER-2018-058427

PATIENT
  Age: 80 Year
  Sex: Male

DRUGS (14)
  1. GABAPENTIN. [Concomitant]
     Active Substance: GABAPENTIN
     Dosage: 30 MG, TID
  2. LIDOCAINE. [Concomitant]
     Active Substance: LIDOCAINE
  3. FUROSEMIDE. [Concomitant]
     Active Substance: FUROSEMIDE
     Dosage: 20 MG
  4. METFORMIN HCL [Concomitant]
     Active Substance: METFORMIN HYDROCHLORIDE
     Dosage: 500 MG
  5. ROZEREM [Concomitant]
     Active Substance: RAMELTEON
     Dosage: 8 MG
  6. HYDROMORPHONE HCL [Concomitant]
     Active Substance: HYDROMORPHONE HYDROCHLORIDE
     Indication: PAIN
     Dosage: UNK
  7. PROBIOTICA [Concomitant]
     Active Substance: PROBIOTICS NOS
  8. XOFIGO [Suspect]
     Active Substance: RADIUM RA-223 DICHLORIDE
     Indication: HORMONE-REFRACTORY PROSTATE CANCER
     Dosage: 174.00 UCI EVERY 4 WEEKS
     Route: 042
     Dates: start: 20180221, end: 20180221
  9. TAMSULOSIN HYDROCHLORIDE. [Concomitant]
     Active Substance: TAMSULOSIN HYDROCHLORIDE
     Dosage: 0.4 MG
  10. LOMOTIL [DIPHENOXYLATE HYDROCHLORIDE] [Concomitant]
  11. XOFIGO [Suspect]
     Active Substance: RADIUM RA-223 DICHLORIDE
     Indication: METASTASES TO BONE
  12. CYANOCOBALAMIN. [Concomitant]
     Active Substance: CYANOCOBALAMIN
     Dosage: 1000 MCG/ML
  13. IMODIUM [LOPERAMIDE,SIMETICONE] [Concomitant]
  14. VESICARE [Concomitant]
     Active Substance: SOLIFENACIN SUCCINATE

REACTIONS (11)
  - Somnolence [None]
  - Haematochezia [None]
  - Movement disorder [None]
  - Pain in extremity [None]
  - Ill-defined disorder [None]
  - Decreased appetite [None]
  - Hormone-refractory prostate cancer [None]
  - Death [Fatal]
  - Diarrhoea [None]
  - Gait disturbance [None]
  - Fatigue [None]
